FAERS Safety Report 19987303 (Version 1)
Quarter: 2021Q4

REPORT INFORMATION
  Report Type: Spontaneous
  Country: JP (occurrence: JP)
  Receive Date: 20211023
  Receipt Date: 20211023
  Transmission Date: 20220303
  Serious: Yes (Other)
  Sender: FDA-Public Use
  Company Number: JP-AMGEN-JPNSP2021159821

PATIENT
  Age: 69 Year
  Sex: Female

DRUGS (5)
  1. OTEZLA [Suspect]
     Active Substance: APREMILAST
     Indication: Behcet^s syndrome
     Dosage: 30 MILLIGRAM, BID
     Route: 048
     Dates: start: 20200910
  2. COLCHICINE [Concomitant]
     Active Substance: COLCHICINE
  3. ICOSAPENT [Concomitant]
     Active Substance: ICOSAPENT
  4. PREDNISOLONE [Concomitant]
     Active Substance: PREDNISOLONE
  5. MINODRONIC ACID [Concomitant]
     Active Substance: MINODRONIC ACID

REACTIONS (1)
  - Interstitial lung disease [Unknown]

NARRATIVE: CASE EVENT DATE: 20210901
